FAERS Safety Report 5067912-X (Version None)
Quarter: 2006Q3

REPORT INFORMATION
  Report Type: 
  Country: None (occurrence: None)
  Receive Date: 20060714
  Receipt Date: 20051114
  Transmission Date: 20061208
  Serious: Yes (Other)
  Sender: FDA-Public Use
  Company Number: HQWYE549014NOV05

PATIENT
  Age: 45 Year
  Sex: Female
  Weight: 68.2 kg

DRUGS (12)
  1. ADVIL [Suspect]
     Indication: PAIN
     Dosage: UNKNOWN AMOUNT AS REQUIRED, ORAL
     Route: 048
  2. ASPIRIN [Suspect]
     Indication: CHEST PAIN
     Dosage: UNKNOWN AMOUNT AS REQUIRED, ORAL
     Route: 048
  3. ASPIRIN [Suspect]
     Indication: PAIN
     Dosage: UNKNOWN AMOUNT AS REQUIRED, ORAL
     Route: 048
  4. LORTAB [Suspect]
     Indication: MIGRAINE
     Dosage: 10 MG AS REQUIRED ^ABOUT 12 TABLETS A MONTH^, ORAL
     Route: 048
  5. PERCOCET [Suspect]
     Indication: PAIN
     Dosage: 10/500, 1CAPSULE FOUR TIMES DAILY, ORAL
     Route: 048
     Dates: start: 20050411, end: 20050701
  6. PREVACID [Suspect]
     Indication: GASTRIC ULCER
     Dosage: 30 MG 1X PER 1 DAY, ORAL - SEE IMAGE
     Route: 048
     Dates: start: 20050701
  7. PREVACID [Suspect]
     Indication: GASTROOESOPHAGEAL REFLUX DISEASE
     Dosage: 30 MG 1X PER 1 DAY, ORAL - SEE IMAGE
     Route: 048
     Dates: start: 20050701
  8. ZOLOFT [Concomitant]
  9. ATARAX [Concomitant]
  10. REGLAN [Concomitant]
  11. ZANTAC [Concomitant]
  12. EFFEXOR [Concomitant]

REACTIONS (4)
  - CHEST PAIN [None]
  - COLITIS [None]
  - DIARRHOEA [None]
  - PERFORATED ULCER [None]
